FAERS Safety Report 6576955-6 (Version None)
Quarter: 2010Q1

REPORT INFORMATION
  Report Type: 
  Country: None (occurrence: None)
  Receive Date: 20100210
  Receipt Date: 20100129
  Transmission Date: 20100710
  Serious: Yes (Other)
  Sender: FDA-Public Use
  Company Number: DE-ELI_LILLY_AND_COMPANY-DE201002000142

PATIENT
  Age: 56 Year
  Sex: Male

DRUGS (1)
  1. XIGRIS [Suspect]
     Dosage: 0.024 MG/KG, EVERY HOUR
     Route: 042
     Dates: start: 20100128, end: 20100129

REACTIONS (1)
  - THROMBOCYTOPENIA [None]
